FAERS Safety Report 22599799 (Version 2)
Quarter: 2023Q2

REPORT INFORMATION
  Report Type: Spontaneous
  Country: ES (occurrence: ES)
  Receive Date: 20230614
  Receipt Date: 20230620
  Transmission Date: 20230721
  Serious: Yes (Death, Other)
  Sender: FDA-Public Use
  Company Number: ES-ASTELLAS-2023EU001383

PATIENT
  Age: 71 Year
  Sex: Female

DRUGS (16)
  1. TEMOZOLOMIDE [Suspect]
     Active Substance: TEMOZOLOMIDE
     Indication: Diffuse large B-cell lymphoma stage IV
     Dosage: CYCLIC (6TH LINE, 4 CYCLES)
     Route: 065
  2. VINCRISTINE SULFATE [Suspect]
     Active Substance: VINCRISTINE SULFATE
     Indication: Diffuse large B-cell lymphoma stage IV
     Dosage: (1ST LINE, 6 CYCLES AS A PART OF RCHOP REGIMEN)
     Route: 065
  3. IBRUTINIB [Suspect]
     Active Substance: IBRUTINIB
     Indication: Diffuse large B-cell lymphoma stage IV
     Dosage: CYCLIC (6TH LINE, 4 CYCLES)
     Route: 065
  4. CYCLOPHOSPHAMIDE [Suspect]
     Active Substance: CYCLOPHOSPHAMIDE
     Indication: Diffuse large B-cell lymphoma stage IV
     Dosage: CYCLIC (1ST LINE, 6 CYCLES AS A PART OF RCHOP REGIMEN)
     Route: 065
  5. CYCLOPHOSPHAMIDE [Suspect]
     Active Substance: CYCLOPHOSPHAMIDE
     Dosage: CYCLIC (2ND LINE, 8 CYCLES AS A PART OF EC REGIMEN)
     Route: 065
  6. RITUXIMAB [Suspect]
     Active Substance: RITUXIMAB
     Indication: Diffuse large B-cell lymphoma stage IV
     Dosage: CYCLIC (3RD LINE, 1 CYCLE, BRIDGE THERAPY)
     Route: 065
  7. RITUXIMAB [Suspect]
     Active Substance: RITUXIMAB
     Dosage: CYCLIC (5TH LINE AS A PART OF R-MTX-ARA-C REGIMEN)
     Route: 065
  8. RITUXIMAB [Suspect]
     Active Substance: RITUXIMAB
     Dosage: CYCLIC (1ST LINE, 6 CYCLES AS A PART OF RCHOP REGIMEN)
     Route: 065
  9. MOSUNETUZUMAB [Suspect]
     Active Substance: MOSUNETUZUMAB
     Indication: Diffuse large B-cell lymphoma stage IV
     Dosage: CYCLIC (2ND LINE, 8 CYCLES)
     Route: 065
  10. EPIRUBICIN [Suspect]
     Active Substance: EPIRUBICIN
     Indication: Diffuse large B-cell lymphoma stage IV
     Dosage: CYCLIC (2ND LINE, 8 CYCLES AS A PART OF EC REGIMEN)
     Route: 065
  11. METHOTREXATE [Suspect]
     Active Substance: METHOTREXATE
     Indication: Diffuse large B-cell lymphoma stage IV
     Dosage: CYCLIC (5TH LINE AS A PART OF R-MTX-ARA-C REGIMEN)
     Route: 065
  12. BENDAMUSTINE HYDROCHLORIDE [Suspect]
     Active Substance: BENDAMUSTINE HYDROCHLORIDE
     Indication: Diffuse large B-cell lymphoma stage IV
     Dosage: CYCLIC (3RD LINE, 1 CYCLE, BRIDGE THERAPY)
  13. PREDNISONE [Suspect]
     Active Substance: PREDNISONE
     Indication: Diffuse large B-cell lymphoma stage IV
     Dosage: 1ST LINE, 6 CYCLES AS A PART OF RCHOP REGIMEN)
     Route: 065
  14. CYTARABINE [Suspect]
     Active Substance: CYTARABINE
     Indication: Diffuse large B-cell lymphoma stage IV
     Dosage: CYCLIC (5TH LINE AS A PART OF R-MTX-ARA-C REGIMEN)
     Route: 065
  15. DEXAMETHASONE [Suspect]
     Active Substance: DEXAMETHASONE
     Indication: Diffuse large B-cell lymphoma stage IV
     Dosage: UNK
     Route: 065
  16. DOXORUBICIN [Suspect]
     Active Substance: DOXORUBICIN
     Indication: Diffuse large B-cell lymphoma stage IV
     Dosage: CYCLIC (1ST LINE, 6 CYCLES AS A PART OF RCHOP REGIMEN)
     Route: 065

REACTIONS (10)
  - Death [Fatal]
  - Vasogenic cerebral oedema [Recovered/Resolved]
  - Diffuse large B-cell lymphoma recurrent [Unknown]
  - Neurological symptom [Unknown]
  - Malignant neoplasm progression [Not Recovered/Not Resolved]
  - Disorientation [Unknown]
  - Therapy partial responder [Unknown]
  - Off label use [Unknown]
  - Malignant neoplasm progression [Recovered/Resolved]
  - Vasogenic cerebral oedema [Not Recovered/Not Resolved]
